FAERS Safety Report 16472319 (Version 2)
Quarter: 2020Q1

REPORT INFORMATION
  Report Type: Spontaneous
  Country: GB (occurrence: GB)
  Receive Date: 20190625
  Receipt Date: 20200129
  Transmission Date: 20200409
  Serious: Yes (Disabling, Other)
  Sender: FDA-Public Use
  Company Number: GB-AUROBINDO-AUR-APL-2019-035215

PATIENT
  Sex: Male

DRUGS (1)
  1. GABAPENTIN FILM-COATED TABLET [Suspect]
     Active Substance: GABAPENTIN
     Indication: PRODUCT USED FOR UNKNOWN INDICATION
     Dosage: 2 DOSAGE FORM, ONCE A DAY (SEVERAL TIMES PER DAY)
     Route: 065
     Dates: start: 20160613, end: 20160616

REACTIONS (6)
  - Drug ineffective [Unknown]
  - Muscle spasms [Unknown]
  - General physical health deterioration [Unknown]
  - Skin discolouration [Unknown]
  - Hypoaesthesia [Not Recovered/Not Resolved]
  - Peripheral swelling [Recovered/Resolved]

NARRATIVE: CASE EVENT DATE: 20160613
